FAERS Safety Report 23132924 (Version 1)
Quarter: 2023Q4

REPORT INFORMATION
  Report Type: Spontaneous
  Country: DE (occurrence: DE)
  Receive Date: 20231101
  Receipt Date: 20231101
  Transmission Date: 20240109
  Serious: Yes (Other)
  Sender: FDA-Public Use
  Company Number: DE-EMBRYOTOX-202114685

PATIENT
  Age: 1 Day
  Sex: Male
  Weight: 3.525 kg

DRUGS (6)
  1. VENLAFAXINE [Suspect]
     Active Substance: VENLAFAXINE HYDROCHLORIDE
     Indication: Depression
     Dosage: 150 [MG/D ]/ EXTENDED-RELEASE, INITIALLY 150 MG/D UNTIL CA. GW 15+4, THEN GRADUALLY REDUCED TO 75 MG
     Route: 064
     Dates: start: 20210403, end: 20220107
  2. LEVOTHYROXINE SODIUM [Concomitant]
     Active Substance: LEVOTHYROXINE SODIUM
     Indication: Hypothyroidism
     Dosage: 50 [?G/D ]
     Route: 064
  3. AMPICILLIN [Concomitant]
     Active Substance: AMPICILLIN
     Indication: Product used for unknown indication
     Route: 064
  4. Comirnaty monovalent (BioNTech/Pfizer) [Concomitant]
     Indication: COVID-19 immunisation
     Dosage: 2ND VACCINATION
     Route: 064
     Dates: start: 20211029, end: 20211029
  5. Comirnaty monovalent (BioNTech/Pfizer) [Concomitant]
     Indication: COVID-19 immunisation
     Dosage: 1ST VACCINATION
     Route: 064
     Dates: start: 20210924, end: 20210924
  6. Eisentabletten AbZ [Concomitant]
     Indication: Iron deficiency anaemia
     Dosage: 200 [MG/D ]/ FROM GW 30 ONWARDS: 100 MG/D
     Route: 064

REACTIONS (7)
  - Neonatal hypoxia [Not Recovered/Not Resolved]
  - Infantile apnoea [Unknown]
  - Respiratory disorder neonatal [Recovered/Resolved]
  - Atrial septal defect [Unknown]
  - Pulmonary artery stenosis [Unknown]
  - Bradycardia neonatal [Unknown]
  - Foetal exposure during pregnancy [Unknown]

NARRATIVE: CASE EVENT DATE: 20220101
